FAERS Safety Report 25464852 (Version 1)
Quarter: 2025Q2

REPORT INFORMATION
  Report Type: Spontaneous
  Country: US (occurrence: US)
  Receive Date: 20250622
  Receipt Date: 20250622
  Transmission Date: 20250716
  Serious: No
  Sender: SANOFI AVENTIS
  Company Number: US-SA-2025SA174244

PATIENT
  Age: 71 Year
  Sex: Female
  Weight: 83.18 kg

DRUGS (15)
  1. DUPIXENT [Suspect]
     Active Substance: DUPILUMAB
     Indication: Dermatitis atopic
     Dosage: 300 MG, QOW
     Route: 058
     Dates: start: 202503
  2. TYLENOL [Concomitant]
     Active Substance: ACETAMINOPHEN
  3. CARBOXYMETHYLCELLULOSE SODIUM [Concomitant]
     Active Substance: CARBOXYMETHYLCELLULOSE SODIUM
  4. VITAMIN K [Concomitant]
     Active Substance: PHYTONADIONE
  5. MAGNESIUM [Concomitant]
     Active Substance: MAGNESIUM
  6. TRAZODONE HCL [Concomitant]
     Active Substance: TRAZODONE HYDROCHLORIDE
  7. GABAPENTIN [Concomitant]
     Active Substance: GABAPENTIN
  8. EXEMESTANE [Concomitant]
     Active Substance: EXEMESTANE
  9. TRIAMCINOLONE ACETONIDE [Concomitant]
     Active Substance: TRIAMCINOLONE ACETONIDE
  10. TELMISARTAN [Concomitant]
     Active Substance: TELMISARTAN
  11. CALCIUM [Concomitant]
     Active Substance: CALCIUM
  12. CLONAZEPAM [Concomitant]
     Active Substance: CLONAZEPAM
  13. BUPROPION HYDROCHLORIDE [Concomitant]
     Active Substance: BUPROPION HYDROCHLORIDE
  14. CLONIDINE HYDROCHLORIDE [Concomitant]
     Active Substance: CLONIDINE HYDROCHLORIDE
  15. VENLAFAXINE HCL [Concomitant]
     Active Substance: VENLAFAXINE HYDROCHLORIDE

REACTIONS (2)
  - Symmetrical drug-related intertriginous and flexural exanthema [Unknown]
  - Eczema [Unknown]

NARRATIVE: CASE EVENT DATE: 20250101
